FAERS Safety Report 6164763-X (Version None)
Quarter: 2009Q2

REPORT INFORMATION
  Report Type: 
  Country: None (occurrence: None)
  Receive Date: 20090423
  Receipt Date: 20090420
  Transmission Date: 20091009
  Serious: Yes (Hospitalization)
  Sender: FDA-Public Use
  Company Number: US-BIOGENIDEC-2008BI033810

PATIENT
  Age: 65 Year
  Sex: Female

DRUGS (1)
  1. TYSABRI [Suspect]
     Indication: MULTIPLE SCLEROSIS
     Route: 042
     Dates: start: 20070829

REACTIONS (5)
  - CATHETER RELATED INFECTION [None]
  - ESCHERICHIA BACTERAEMIA [None]
  - LOSS OF CONSCIOUSNESS [None]
  - PSEUDOMONAL BACTERAEMIA [None]
  - SEPSIS [None]
